FAERS Safety Report 15137921 (Version 1)
Quarter: 2018Q3

REPORT INFORMATION
  Report Type: Report from Study
  Country: None (occurrence: US)
  Receive Date: 20180712
  Receipt Date: 20180712
  Transmission Date: 20181010
  Serious: Yes (Hospitalization)
  Sender: FDA-Public Use
  Company Number: US-ABBVIE-18K-163-2412143-00

PATIENT
  Age: 63 Year
  Sex: Female
  Weight: 73.55 kg

DRUGS (1)
  1. HUMIRA [Suspect]
     Active Substance: ADALIMUMAB
     Indication: ANKYLOSING SPONDYLITIS
     Route: 058
     Dates: start: 20180609, end: 2018

REACTIONS (9)
  - Fatigue [Recovering/Resolving]
  - Joint swelling [Recovering/Resolving]
  - Speech disorder [Recovering/Resolving]
  - Injection site rash [Recovering/Resolving]
  - Dyspnoea [Not Recovered/Not Resolved]
  - Peripheral swelling [Recovering/Resolving]
  - Cerebrovascular accident [Recovering/Resolving]
  - Chest pain [Not Recovered/Not Resolved]
  - Hypersensitivity [Recovering/Resolving]

NARRATIVE: CASE EVENT DATE: 2018
